FAERS Safety Report 17815684 (Version 2)
Quarter: 2020Q2

REPORT INFORMATION
  Report Type: Spontaneous
  Country: AU (occurrence: AU)
  Receive Date: 20200522
  Receipt Date: 20200526
  Transmission Date: 20200714
  Serious: Yes (Other)
  Sender: FDA-Public Use
  Company Number: AU-PFIZER INC-2020199325

PATIENT
  Age: 52 Year
  Sex: Female

DRUGS (7)
  1. LOZANOC [Interacting]
     Active Substance: ITRACONAZOLE
     Indication: BRONCHOPULMONARY ASPERGILLOSIS ALLERGIC
     Dosage: UNK
  2. AMOXICILLIN CLAVULANIC ACID [Interacting]
     Active Substance: AMOXICILLIN\CLAVULANIC ACID
     Indication: RESPIRATORY TRACT INFECTION
     Dosage: UNK
  3. ERYTHROMYCIN. [Suspect]
     Active Substance: ERYTHROMYCIN
     Indication: RESPIRATORY TRACT INFECTION
     Dosage: UNK
  4. GENVOYA [Interacting]
     Active Substance: COBICISTAT\ELVITEGRAVIR\EMTRICITABINE\TENOFOVIR ALAFENAMIDE FUMARATE
     Indication: HIV INFECTION
     Dosage: UNK
  5. FLUTICASONE FUROATE/VILANTEROL [Interacting]
     Active Substance: FLUTICASONE FUROATE\VILANTEROL TRIFENATATE
     Indication: BRONCHOPULMONARY ASPERGILLOSIS ALLERGIC
     Dosage: UNK
  6. COBICISTAT [Concomitant]
     Active Substance: COBICISTAT
     Indication: HIV INFECTION
     Dosage: UNK
  7. ELVITEGRAVIR [Concomitant]
     Active Substance: ELVITEGRAVIR
     Indication: HIV INFECTION
     Dosage: UNK

REACTIONS (11)
  - Lipohypertrophy [Unknown]
  - Cushingoid [Unknown]
  - Skin atrophy [Unknown]
  - Drug interaction [Unknown]
  - Dysphonia [Unknown]
  - Cortisol decreased [Unknown]
  - Blood pressure increased [Unknown]
  - Cushing^s syndrome [Unknown]
  - Contusion [Unknown]
  - Myopathy [Unknown]
  - Swelling face [Unknown]
